FAERS Safety Report 14040583 (Version 1)
Quarter: 2017Q4

REPORT INFORMATION
  Report Type: Spontaneous
  Country: US (occurrence: US)
  Receive Date: 20171004
  Receipt Date: 20171004
  Transmission Date: 20180321
  Serious: No
  Sender: FDA-Public Use
  Company Number: US-ELI_LILLY_AND_COMPANY-US201709008616

PATIENT
  Sex: Male

DRUGS (1)
  1. CIALIS [Suspect]
     Active Substance: TADALAFIL
     Indication: BENIGN PROSTATIC HYPERPLASIA
     Dosage: 2.5 MG, DAILY
     Route: 065
     Dates: start: 201709

REACTIONS (4)
  - Urine output decreased [Unknown]
  - Pollakiuria [Unknown]
  - Urethral disorder [Unknown]
  - Micturition urgency [Unknown]
